FAERS Safety Report 18937391 (Version 6)
Quarter: 2021Q2

REPORT INFORMATION
  Report Type: Spontaneous
  Country: GB (occurrence: GB)
  Receive Date: 20210224
  Receipt Date: 20210524
  Transmission Date: 20210717
  Serious: Yes (Hospitalization, Other)
  Sender: FDA-Public Use
  Company Number: GB-MYLANLABS-2021M1011043

PATIENT
  Age: 46 Year
  Sex: Male

DRUGS (12)
  1. CLOZARIL [Suspect]
     Active Substance: CLOZAPINE
     Dosage: 225 MILLIGRAM, PM
     Route: 048
     Dates: end: 20210217
  2. RISPERIDONE. [Concomitant]
     Active Substance: RISPERIDONE
     Indication: SCHIZOPHRENIA
     Dosage: 3 MILLIGRAM, BID
     Route: 048
  3. OMEPRAZOLE. [Concomitant]
     Active Substance: OMEPRAZOLE
     Indication: ABDOMINAL DISCOMFORT
     Dosage: 20 MILLIGRAM, QD
     Route: 048
  4. LORATADINE. [Concomitant]
     Active Substance: LORATADINE
     Indication: HYPERSENSITIVITY
     Dosage: 10 MILLIGRAM, QD
     Route: 048
  5. CLOZARIL [Suspect]
     Active Substance: CLOZAPINE
     Dosage: UNK
     Route: 048
     Dates: start: 20210326
  6. COLECALCIFEROL [Concomitant]
     Active Substance: CHOLECALCIFEROL
     Indication: VITAMIN SUPPLEMENTATION
     Dosage: 400 INTERNATIONAL UNIT, QD
     Route: 048
  7. SERTRALINE [Concomitant]
     Active Substance: SERTRALINE HYDROCHLORIDE
     Indication: DEPRESSION
     Dosage: 200 MILLIGRAM, QD
     Route: 048
  8. LAMOTRIGINE. [Concomitant]
     Active Substance: LAMOTRIGINE
     Indication: AFFECTIVE DISORDER
     Dosage: 150 MILLIGRAM, BID
     Route: 048
  9. FERROUS FUMARATE [Concomitant]
     Active Substance: FERROUS FUMARATE
     Indication: MINERAL SUPPLEMENTATION
     Dosage: 210 MILLIGRAM, QD
     Route: 048
  10. TRIMBOW [Concomitant]
     Active Substance: BECLOMETHASONE DIPROPIONATE\FORMOTEROL FUMARATE\GLYCOPYRROLATE
     Indication: CHRONIC OBSTRUCTIVE PULMONARY DISEASE
  11. CLOZARIL [Suspect]
     Active Substance: CLOZAPINE
     Indication: SCHIZOPHRENIA
     Dosage: 200 MILLIGRAM, AM
     Route: 048
     Dates: start: 20050130, end: 20210217
  12. TRIMBOW [Concomitant]
     Active Substance: BECLOMETHASONE DIPROPIONATE\FORMOTEROL FUMARATE\GLYCOPYRROLATE
     Indication: ASTHMA
     Dosage: 2 PUFF, BID

REACTIONS (6)
  - Schizophrenia [Unknown]
  - Neutrophil count decreased [Recovered/Resolved]
  - Therapy change [Unknown]
  - COVID-19 [Recovered/Resolved]
  - Leukopenia [Recovered/Resolved]
  - Platelet count decreased [Recovered/Resolved]

NARRATIVE: CASE EVENT DATE: 20210217
